FAERS Safety Report 21445602 (Version 1)
Quarter: 2022Q4

REPORT INFORMATION
  Report Type: Spontaneous
  Country: BR (occurrence: None)
  Receive Date: 20221012
  Receipt Date: 20221012
  Transmission Date: 20230113
  Serious: Yes (Other)
  Sender: FDA-Public Use
  Company Number: 2022A341672

PATIENT
  Sex: Male

DRUGS (4)
  1. QTERN [Suspect]
     Active Substance: DAPAGLIFLOZIN\SAXAGLIPTIN HYDROCHLORIDE
     Indication: Diabetes mellitus
     Dosage: DAILY
     Route: 048
     Dates: start: 202204, end: 2022
  2. QTERN [Suspect]
     Active Substance: DAPAGLIFLOZIN\SAXAGLIPTIN HYDROCHLORIDE
     Indication: Cardiac disorder
     Dosage: DAILY
     Route: 048
     Dates: start: 202204, end: 2022
  3. QTERN [Suspect]
     Active Substance: DAPAGLIFLOZIN\SAXAGLIPTIN HYDROCHLORIDE
     Indication: Diabetes mellitus
     Dosage: 1 TABLET, DAILY
     Route: 048
     Dates: start: 2022
  4. QTERN [Suspect]
     Active Substance: DAPAGLIFLOZIN\SAXAGLIPTIN HYDROCHLORIDE
     Indication: Cardiac disorder
     Dosage: 1 TABLET, DAILY
     Route: 048
     Dates: start: 2022

REACTIONS (2)
  - Myocardial infarction [Unknown]
  - Product prescribing error [Unknown]

NARRATIVE: CASE EVENT DATE: 20220927
